FAERS Safety Report 7759509-5 (Version None)
Quarter: 2011Q3

REPORT INFORMATION
  Report Type: 
  Country: None (occurrence: None)
  Receive Date: 20110919
  Receipt Date: 20110919
  Transmission Date: 20111222
  Serious: Yes (Life-Threatening, Hospitalization, Other)
  Sender: FDA-Public Use
  Company Number: None

PATIENT
  Age: 57 Year
  Sex: Female
  Weight: 83.914 kg

DRUGS (1)
  1. DEXILANT [Suspect]
     Indication: GASTROOESOPHAGEAL REFLUX DISEASE
     Dosage: ONCE PER DAY
     Dates: start: 20110816, end: 20110907

REACTIONS (8)
  - FEELING HOT [None]
  - RASH GENERALISED [None]
  - RASH PRURITIC [None]
  - HEADACHE [None]
  - DIARRHOEA [None]
  - ERYTHEMA [None]
  - REACTION TO PRESERVATIVES [None]
  - OROPHARYNGEAL PAIN [None]
